FAERS Safety Report 18800020 (Version 2)
Quarter: 2021Q2

REPORT INFORMATION
  Report Type: Spontaneous
  Country: PL (occurrence: PL)
  Receive Date: 20210128
  Receipt Date: 20210524
  Transmission Date: 20210717
  Serious: Yes (Hospitalization)
  Sender: FDA-Public Use
  Company Number: PL-MYLANLABS-2021M1005374

PATIENT
  Age: 36 Year
  Sex: Female

DRUGS (21)
  1. AMITRIPTYLINE [Concomitant]
     Active Substance: AMITRIPTYLINE
     Indication: ANXIETY
     Dosage: PATIENT WAS GIVEN AMITRIPTYLINE
  2. GABAPENTIN. [Suspect]
     Active Substance: GABAPENTIN
     Indication: NEURALGIA
     Dosage: THE PATIENT WAS GIVEN GABAPENTIN
  3. METHADONE [Suspect]
     Active Substance: METHADONE HYDROCHLORIDE
     Dosage: 3 MILLIGRAM, Q8H(GIVEN METHADONE AT A DOSE OF 3 MG EVERY 8 HOURS
     Route: 065
  4. VENLAFAXIN [Concomitant]
     Active Substance: VENLAFAXINE HYDROCHLORIDE
     Indication: ANXIETY
     Dosage: 75 MILLIGRAM, QD (PATIENT GIVEN VENLAFAXIN)
  5. OXYCODONE [Suspect]
     Active Substance: OXYCODONE
     Indication: PAIN
     Dosage: THE DOSE OF OXYCODONE WAS GRADUALLY
  6. METHADONE [Suspect]
     Active Substance: METHADONE HYDROCHLORIDE
     Dosage: 5 MILLIGRAM, Q8H
     Route: 065
  7. NALOXONE HYDROCHLORIDE W/OXYCODONE HYDROCHLOR [Suspect]
     Active Substance: NALOXONE HYDROCHLORIDE\OXYCODONE HYDROCHLORIDE
     Indication: PAIN
     Dosage: UNK UNK, QD (60/30 MG, DAILY)
     Route: 065
  8. FENTANYL. [Concomitant]
     Active Substance: FENTANYL
     Indication: BREAKTHROUGH PAIN
     Dosage: 100 MICROGRAM
     Route: 050
  9. GABAPENTIN. [Suspect]
     Active Substance: GABAPENTIN
     Dosage: 600 MILLIGRAM (PATIENT WAS GIVEN GABAPENTIN
     Route: 065
  10. MORPHINE [Suspect]
     Active Substance: MORPHINE
     Dosage: GRADUAL INCREASE
     Route: 065
  11. LEVOTHYROXINE. [Concomitant]
     Active Substance: LEVOTHYROXINE
     Indication: GOITRE
     Dosage: 100 MICROGRAM, QD,1 ? 100 UG
  12. KETOPROFEN. [Suspect]
     Active Substance: KETOPROFEN
     Indication: PAIN
     Dosage: THE PATIENT WAS GIVEN KETOPROFEN
  13. METHADONE [Suspect]
     Active Substance: METHADONE HYDROCHLORIDE
     Indication: PAIN
     Dosage: PATIENT WAS GIVEN METHADONE AT DOSE OF 3 MG
  14. TRAMADOL. [Suspect]
     Active Substance: TRAMADOL
     Dosage: PATIENT WAS GIVEN TRAMADOL
  15. TRAMADOL. [Suspect]
     Active Substance: TRAMADOL
     Indication: PAIN
     Dosage: PATIENT WAS GIVEN TRAMADOL
  16. MORPHINE [Suspect]
     Active Substance: MORPHINE
     Indication: PAIN
     Dosage: 5 MILLIGRAM,Q4H(INITIAL DOSE OF MORPHINE)
     Route: 065
  17. NALOXONE HYDROCHLORIDE W/OXYCODONE HYDROCHLOR [Suspect]
     Active Substance: NALOXONE HYDROCHLORIDE\OXYCODONE HYDROCHLORIDE
     Dosage: UNK (THE DOSE OF NALOXONE WAS GRADUALLY INCREASED TO 30 MG PER DAY)
     Route: 065
  18. FENTANYL. [Concomitant]
     Active Substance: FENTANYL
     Dosage: 50?G (THE INITIAL DOSE OF TRANSMUCOSAL FENTANYL WAS 50 ?G LATER INCREASED TO 100 ?G)
  19. GABAPENTIN. [Suspect]
     Active Substance: GABAPENTIN
     Dosage: DOSE OF GABAPENTIN WAS INCREASED TO
  20. NALOXONE [Suspect]
     Active Substance: NALOXONE
     Indication: PAIN
     Dosage: THE DOSE OF NALOXONE WAS GRADUALLY
  21. FENTANYL. [Concomitant]
     Active Substance: FENTANYL
     Indication: PAIN
     Dosage: INITIAL DOSE OF TRANSMUCOSAL

REACTIONS (3)
  - Drug ineffective [Recovering/Resolving]
  - Inadequate analgesia [Recovering/Resolving]
  - Constipation [Recovered/Resolved]
